FAERS Safety Report 13171056 (Version 1)
Quarter: 2017Q1

REPORT INFORMATION
  Report Type: Spontaneous
  Country: US (occurrence: US)
  Receive Date: 20170131
  Receipt Date: 20170131
  Transmission Date: 20170428
  Serious: No
  Sender: FDA-Public Use
  Company Number: US-ABBVIE-16K-163-1786237-00

PATIENT
  Sex: Female

DRUGS (5)
  1. METHOTREXATE. [Concomitant]
     Active Substance: METHOTREXATE
     Indication: PRODUCT USED FOR UNKNOWN INDICATION
     Dosage: 6 TABS PER WEEK
     Dates: start: 2016
  2. ORENCIA [Concomitant]
     Active Substance: ABATACEPT
     Indication: DRUG INEFFECTIVE
  3. ACTENIA [Concomitant]
     Indication: DRUG INEFFECTIVE
     Dates: start: 20160620, end: 201607
  4. HUMIRA [Suspect]
     Active Substance: ADALIMUMAB
     Indication: PRODUCT USED FOR UNKNOWN INDICATION
     Route: 058
     Dates: start: 2014, end: 2014
  5. PLAQUENIL [Concomitant]
     Active Substance: HYDROXYCHLOROQUINE SULFATE
     Indication: PRODUCT USED FOR UNKNOWN INDICATION
     Dates: start: 2010, end: 2013

REACTIONS (2)
  - Supraventricular tachycardia [Unknown]
  - Drug hypersensitivity [Unknown]
